FAERS Safety Report 13917699 (Version 1)
Quarter: 2017Q3

REPORT INFORMATION
  Report Type: Report from Study
  Country: GB (occurrence: GB)
  Receive Date: 20170829
  Receipt Date: 20170829
  Transmission Date: 20171127
  Serious: Yes (Other)
  Sender: FDA-Public Use
  Company Number: PHFR2017GB006751

PATIENT
  Sex: Female

DRUGS (1)
  1. COSENTYX [Suspect]
     Active Substance: SECUKINUMAB
     Indication: PSORIATIC ARTHROPATHY
     Dosage: 300 MG, QW (FOR FOUR WEEKS THEN EVERY FOUR WEEKS THEREAFTER)
     Route: 065
     Dates: start: 20170815

REACTIONS (2)
  - Microcytic anaemia [Unknown]
  - Dizziness [Recovered/Resolved]
